FAERS Safety Report 21626564 (Version 3)
Quarter: 2023Q1

REPORT INFORMATION
  Report Type: Spontaneous
  Country: TN (occurrence: None)
  Receive Date: 20221122
  Receipt Date: 20230110
  Transmission Date: 20230418
  Serious: Yes (Other)
  Sender: FDA-Public Use
  Company Number: TN-Merck Healthcare KGaA-9366178

PATIENT

DRUGS (1)
  1. REBIF [Suspect]
     Active Substance: INTERFERON BETA-1A
     Indication: Multiple sclerosis

REACTIONS (2)
  - Renal failure [Not Recovered/Not Resolved]
  - Thrombotic microangiopathy [Unknown]

NARRATIVE: CASE EVENT DATE: 20221007
